FAERS Safety Report 8041125-1 (Version None)
Quarter: 2012Q1

REPORT INFORMATION
  Report Type: 
  Country: None (occurrence: None)
  Receive Date: 20120112
  Receipt Date: 20120104
  Transmission Date: 20120608
  Serious: Yes (Other)
  Sender: FDA-Public Use
  Company Number: US-BAYER-2011-121054

PATIENT
  Age: 25 Year
  Sex: Female

DRUGS (9)
  1. DROSPIRENONE AND ETHINYL ESTRADIOL [Suspect]
     Dosage: UNK
     Dates: start: 20080601, end: 20090801
  2. CYCLOBENZAPRINE [Concomitant]
     Dosage: 10 MG, UNK
     Dates: start: 20081209
  3. TYLENOL W/ CODEINE NO. 3 [Concomitant]
     Dosage: UNK
     Dates: start: 20081201
  4. OXYCODONE HCL [Concomitant]
     Dosage: 5 MG, UNK
     Dates: start: 20081212
  5. YASMIN [Suspect]
     Dosage: UNK
     Dates: start: 20080601, end: 20090801
  6. YAZ [Suspect]
     Dosage: UNK
     Dates: start: 20080601, end: 20090801
  7. LORAZEPAM [Concomitant]
     Dosage: 1 MG, UNK
     Dates: start: 20081030
  8. HYDROCODONE BITARTRATE [Concomitant]
     Dosage: 5 MG, UNK
     Dates: start: 20081223
  9. METOCLOPRAMIDE [Concomitant]
     Dosage: 10 MG, UNK
     Dates: start: 20081227

REACTIONS (7)
  - INJURY [None]
  - EMOTIONAL DISTRESS [None]
  - ANXIETY [None]
  - CHOLECYSTITIS CHRONIC [None]
  - GALLBLADDER DISORDER [None]
  - GENERAL PHYSICAL HEALTH DETERIORATION [None]
  - PAIN [None]
